FAERS Safety Report 8381373-4 (Version None)
Quarter: 2012Q2

REPORT INFORMATION
  Report Type: 
  Country: None (occurrence: None)
  Receive Date: 20120523
  Receipt Date: 20120510
  Transmission Date: 20120825
  Serious: Yes (Hospitalization, Other)
  Sender: FDA-Public Use
  Company Number: FR-ELI_LILLY_AND_COMPANY-FR201205003437

PATIENT
  Sex: Male

DRUGS (10)
  1. INNOHEP [Concomitant]
     Dosage: 4500 UL, QD
     Route: 058
  2. PLAVIX [Concomitant]
     Dosage: 75 MG, QD
     Route: 048
  3. EZETIMIBE [Concomitant]
     Dosage: 10 MG, QD
     Route: 048
  4. CYMBALTA [Suspect]
     Dosage: 60 MG, QD
     Route: 048
     Dates: end: 20111101
  5. CYMBALTA [Suspect]
     Dosage: 90 MG, QD
     Route: 048
     Dates: start: 20111101, end: 20120405
  6. ATORVASTATIN [Concomitant]
     Dosage: 20 MG, QD
     Route: 048
  7. CYMBALTA [Suspect]
     Dosage: 30 MG, QD
     Dates: start: 20120407, end: 20120413
  8. CYMBALTA [Suspect]
     Dosage: 60 MG, QD
  9. TRIATEC                                 /FRA/ [Concomitant]
     Dosage: 10 MG, QD
     Route: 048
  10. AMLODIPINE BESYLATE [Concomitant]
     Dosage: 5 MG, QD

REACTIONS (7)
  - EXECUTIVE DYSFUNCTION [None]
  - FALL [None]
  - FAECALOMA [None]
  - ORTHOSTATIC HYPOTENSION [None]
  - AFFECTIVE DISORDER [None]
  - MEMORY IMPAIRMENT [None]
  - PSYCHOMOTOR RETARDATION [None]
